FAERS Safety Report 19971987 (Version 2)
Quarter: 2021Q4

REPORT INFORMATION
  Report Type: Report from Study
  Country: US (occurrence: US)
  Receive Date: 20211019
  Receipt Date: 20211201
  Transmission Date: 20220303
  Serious: Yes (Other)
  Sender: FDA-Public Use
  Company Number: US-TAKEDA-US201842782

PATIENT
  Age: 64 Year
  Sex: Female
  Weight: 35 kg

DRUGS (12)
  1. TEDUGLUTIDE [Suspect]
     Active Substance: TEDUGLUTIDE
     Indication: Short-bowel syndrome
     Dosage: 1.77 MILLIGRAM, QD
     Route: 058
     Dates: start: 20180129
  2. TEDUGLUTIDE [Suspect]
     Active Substance: TEDUGLUTIDE
     Indication: Short-bowel syndrome
     Dosage: 1.77 MILLIGRAM, QD
     Route: 058
     Dates: start: 20180129
  3. TEDUGLUTIDE [Suspect]
     Active Substance: TEDUGLUTIDE
     Indication: Short-bowel syndrome
     Dosage: 1.77 MILLIGRAM, QD
     Route: 058
     Dates: start: 20180129
  4. TEDUGLUTIDE [Suspect]
     Active Substance: TEDUGLUTIDE
     Indication: Short-bowel syndrome
     Dosage: 1.77 MILLIGRAM, QD
     Route: 058
     Dates: start: 20180129
  5. TEDUGLUTIDE [Suspect]
     Active Substance: TEDUGLUTIDE
     Dosage: 1.77 MILLIGRAM, QD
     Route: 065
     Dates: start: 20180207
  6. TEDUGLUTIDE [Suspect]
     Active Substance: TEDUGLUTIDE
     Dosage: 1.77 MILLIGRAM, QD
     Route: 065
     Dates: start: 20180207
  7. TEDUGLUTIDE [Suspect]
     Active Substance: TEDUGLUTIDE
     Dosage: 1.77 MILLIGRAM, QD
     Route: 065
     Dates: start: 20180207
  8. TEDUGLUTIDE [Suspect]
     Active Substance: TEDUGLUTIDE
     Dosage: 1.77 MILLIGRAM, QD
     Route: 065
     Dates: start: 20180207
  9. TEDUGLUTIDE [Suspect]
     Active Substance: TEDUGLUTIDE
     Dosage: 0.1770, QD
     Route: 065
     Dates: start: 20180207
  10. TEDUGLUTIDE [Suspect]
     Active Substance: TEDUGLUTIDE
     Dosage: 0.1770, QD
     Route: 065
     Dates: start: 20180207
  11. TEDUGLUTIDE [Suspect]
     Active Substance: TEDUGLUTIDE
     Dosage: 0.1770, QD
     Route: 065
     Dates: start: 20180207
  12. TEDUGLUTIDE [Suspect]
     Active Substance: TEDUGLUTIDE
     Dosage: 0.1770, QD
     Route: 065
     Dates: start: 20180207

REACTIONS (3)
  - Pyoderma [Recovering/Resolving]
  - Osteomyelitis [Recovered/Resolved]
  - Therapy interrupted [Recovering/Resolving]

NARRATIVE: CASE EVENT DATE: 20181105
